FAERS Safety Report 11322501 (Version 4)
Quarter: 2022Q3

REPORT INFORMATION
  Report Type: Spontaneous
  Country: CA (occurrence: None)
  Receive Date: 20150730
  Receipt Date: 20220802
  Transmission Date: 20221026
  Serious: Yes (Hospitalization)
  Sender: FDA-Public Use
  Company Number: CA-ROCHE-1614497

PATIENT
  Age: 2 Year
  Sex: Female

DRUGS (7)
  1. SOMATROPIN [Suspect]
     Active Substance: SOMATROPIN
     Indication: Growth hormone deficiency
     Route: 058
  2. DDAVP [Suspect]
     Active Substance: DESMOPRESSIN ACETATE
     Indication: Product used for unknown indication
     Route: 048
  3. DDAVP [Suspect]
     Active Substance: DESMOPRESSIN ACETATE
     Route: 048
  4. NOCDURNA [Suspect]
     Active Substance: DESMOPRESSIN ACETATE
     Indication: Product used for unknown indication
     Route: 048
  5. NOCDURNA [Suspect]
     Active Substance: DESMOPRESSIN ACETATE
     Route: 048
  6. PREDNISOLONE SODIUM PHOSPHATE [Concomitant]
     Active Substance: PREDNISOLONE SODIUM PHOSPHATE
     Indication: Product used for unknown indication
     Route: 065
  7. SYNTHROID [Concomitant]
     Active Substance: LEVOTHYROXINE SODIUM
     Indication: Product used for unknown indication
     Route: 065

REACTIONS (11)
  - Diarrhoea [Recovered/Resolved]
  - Electrolyte imbalance [Recovered/Resolved]
  - Gastrointestinal infection [Recovered/Resolved]
  - Hypoglycaemia [Recovered/Resolved]
  - Hyponatraemic seizure [Recovered/Resolved]
  - Hypophagia [Recovered/Resolved]
  - Oesophageal disorder [Recovered/Resolved]
  - Pyrexia [Recovered/Resolved]
  - Seizure [Recovered/Resolved]
  - Tonsillar disorder [Recovered/Resolved]
  - Vomiting [Recovered/Resolved]
